FAERS Safety Report 11793477 (Version 1)
Quarter: 2015Q4

REPORT INFORMATION
  Report Type: Spontaneous
  Country: US (occurrence: US)
  Receive Date: 20151202
  Receipt Date: 20151202
  Transmission Date: 20160305
  Serious: No
  Sender: FDA-Public Use
  Company Number: US-IROKO PHARMACEUTICALS LLC-US-I09001-14-00147

PATIENT
  Sex: Female

DRUGS (6)
  1. METOPROLOL [Concomitant]
     Active Substance: METOPROLOL
     Indication: BLOOD PRESSURE MANAGEMENT
     Route: 048
  2. ZORVOLEX [Suspect]
     Active Substance: DICLOFENAC
     Route: 048
     Dates: start: 20140619, end: 20140619
  3. ZORVOLEX [Suspect]
     Active Substance: DICLOFENAC
     Indication: PAIN
     Route: 048
     Dates: start: 20140618, end: 20140618
  4. ZORVOLEX [Suspect]
     Active Substance: DICLOFENAC
     Route: 048
     Dates: start: 20140620, end: 20140620
  5. MAXZIDE [Concomitant]
     Active Substance: HYDROCHLOROTHIAZIDE\TRIAMTERENE
     Indication: PRODUCT USED FOR UNKNOWN INDICATION
     Route: 048
  6. LODINE [Concomitant]
     Active Substance: ETODOLAC
     Indication: UTERINE LEIOMYOMA
     Route: 048

REACTIONS (5)
  - Drug ineffective [Unknown]
  - Dry mouth [Unknown]
  - Swelling face [Unknown]
  - Swelling [Unknown]
  - Decreased appetite [Unknown]

NARRATIVE: CASE EVENT DATE: 20140619
